FAERS Safety Report 7377704 (Version 2)
Quarter: 2013Q2

REPORT INFORMATION
  Report Type: Report from Study
  Country: FR (occurrence: FR)
  Receive Date: 20100505
  Receipt Date: 20130502
  Transmission Date: 20140414
  Serious: Yes (Hospitalization, Other)
  Sender: FDA-Public Use
  Company Number: FR-ROCHE-700062

PATIENT
  Age: 41 Year
  Sex: Male
  Weight: 54.4 kg

DRUGS (6)
  1. PEG-INTERFERON ALFA 2A [Suspect]
     Indication: CHRONIC HEPATITIS C
     Dosage: LAST DOSE: 1 APRIL 2010
     Route: 058
     Dates: start: 20091211
  2. RIBAVIRIN [Suspect]
     Indication: CHRONIC HEPATITIS C
     Dosage: LAST DOSE 1 APRIL 2010.
     Route: 048
     Dates: start: 20091211
  3. REVIA [Concomitant]
     Route: 048
  4. AERIUS [Concomitant]
     Route: 048
  5. SERESTA [Concomitant]
     Route: 048
  6. COLD MEDICATION NOS [Concomitant]
     Route: 003

REACTIONS (3)
  - Alcoholism [Recovered/Resolved]
  - Benign oesophageal neoplasm [Not Recovered/Not Resolved]
  - Alcohol detoxification [Recovered/Resolved]
